FAERS Safety Report 18005492 (Version 1)
Quarter: 2020Q3

REPORT INFORMATION
  Report Type: Report from Study
  Country: US (occurrence: US)
  Receive Date: 20200709
  Receipt Date: 20200709
  Transmission Date: 20201103
  Serious: Yes (Other)
  Sender: FDA-Public Use
  Company Number: US-ACTELION-A-NJ2020-205271

PATIENT
  Age: 61 Year
  Sex: Female
  Weight: 62.13 kg

DRUGS (2)
  1. SILDENAFIL CITRATE. [Concomitant]
     Active Substance: SILDENAFIL CITRATE
  2. OPSUMIT [Suspect]
     Active Substance: MACITENTAN
     Indication: PULMONARY ARTERIAL HYPERTENSION
     Dosage: 10 MG, QD
     Route: 048
     Dates: start: 20200428, end: 20200514

REACTIONS (4)
  - Dyspnoea [Unknown]
  - Weight increased [Unknown]
  - Peripheral swelling [Unknown]
  - Headache [Recovered/Resolved]

NARRATIVE: CASE EVENT DATE: 202005
